FAERS Safety Report 10690703 (Version 1)
Quarter: 2015Q1

REPORT INFORMATION
  Report Type: Spontaneous
  Country: GB (occurrence: GB)
  Receive Date: 20150105
  Receipt Date: 20150105
  Transmission Date: 20150720
  Serious: Yes (Hospitalization)
  Sender: FDA-Public Use
  Company Number: GB-TEVA-531787ISR

PATIENT
  Age: 80 Year
  Sex: Female

DRUGS (11)
  1. GABAPENTIN. [Concomitant]
     Active Substance: GABAPENTIN
  2. LANSOPRAZOLE. [Concomitant]
     Active Substance: LANSOPRAZOLE
  3. PERINDOPRIL [Concomitant]
     Active Substance: PERINDOPRIL
  4. AMLODIPINE [Concomitant]
     Active Substance: AMLODIPINE BESYLATE
  5. COSOPT [Concomitant]
     Active Substance: DORZOLAMIDE HYDROCHLORIDE\TIMOLOL MALEATE
  6. LANTUS [Concomitant]
     Active Substance: INSULIN GLARGINE
  7. TRAMADOL [Suspect]
     Active Substance: TRAMADOL
     Indication: PHANTOM PAIN
     Dosage: 2 DOSES
     Route: 048
     Dates: start: 20141217
  8. PARACETAMOL [Concomitant]
     Active Substance: ACETAMINOPHEN
  9. ATORVASTATIN [Concomitant]
     Active Substance: ATORVASTATIN
  10. CLOPIDOGREL [Concomitant]
     Active Substance: CLOPIDOGREL BISULFATE
  11. INDAPAMIDE. [Concomitant]
     Active Substance: INDAPAMIDE

REACTIONS (4)
  - Somnolence [Recovering/Resolving]
  - Miosis [Recovering/Resolving]
  - Unresponsive to stimuli [Recovering/Resolving]
  - Oxygen saturation decreased [Recovering/Resolving]

NARRATIVE: CASE EVENT DATE: 20141218
